FAERS Safety Report 6043679-3 (Version None)
Quarter: 2009Q1

REPORT INFORMATION
  Report Type: 
  Country: None (occurrence: None)
  Receive Date: 20090115
  Receipt Date: 20090104
  Transmission Date: 20090719
  Serious: Yes (Life-Threatening, Hospitalization)
  Sender: FDA-Public Use
  Company Number: GXKR2009AU00536

PATIENT
  Age: 82 Year
  Sex: Male
  Weight: 69 kg

DRUGS (4)
  1. ESCITALOPRAM [Suspect]
     Indication: DEPRESSION
  2. OXAZEPAM [Suspect]
     Indication: DEPRESSION
  3. SULFAMETHOXAZOLE TRIMETHOPRIM [Suspect]
     Indication: BACTERIAL INFECTION
     Dosage: 1 DF, Q12H; 2 DF, Q12H, HOSPITAL 35-48, ORAL
     Route: 048
  4. SULFAMETHOXAZOLE TRIMETHOPRIM [Suspect]
     Indication: LUNG INFECTION
     Dosage: 1 DF, Q12H; 2 DF, Q12H, HOSPITAL 35-48, ORAL
     Route: 048

REACTIONS (20)
  - BALANCE DISORDER [None]
  - COMA [None]
  - DELIRIUM [None]
  - DISORIENTATION [None]
  - ENDOTRACHEAL INTUBATION [None]
  - FALL [None]
  - GAIT DISTURBANCE [None]
  - ILLUSION [None]
  - INTENTIONAL OVERDOSE [None]
  - LOSS OF CONSCIOUSNESS [None]
  - LUNG ABSCESS [None]
  - MECHANICAL VENTILATION [None]
  - MOVEMENT DISORDER [None]
  - PLEURAL EFFUSION [None]
  - PNEUMONIA ASPIRATION [None]
  - PRODUCTIVE COUGH [None]
  - RHABDOMYOLYSIS [None]
  - SERRATIA INFECTION [None]
  - STAPHYLOCOCCAL INFECTION [None]
  - SUICIDE ATTEMPT [None]
